FAERS Safety Report 7731053-0 (Version None)
Quarter: 2011Q3

REPORT INFORMATION
  Report Type: 
  Country: None (occurrence: None)
  Receive Date: 20110906
  Receipt Date: 20110906
  Transmission Date: 20111222
  Serious: No
  Sender: FDA-Public Use
  Company Number: None

PATIENT
  Age: 70 Year
  Sex: Female
  Weight: 56.699 kg

DRUGS (1)
  1. KY WARMING JELLY [Suspect]
     Indication: INADEQUATE LUBRICATION
     Dosage: 10 GRAMS
     Route: 067
     Dates: start: 20110514, end: 20110514

REACTIONS (1)
  - ADVERSE EVENT [None]
